FAERS Safety Report 18653318 (Version 2)
Quarter: 2021Q1

REPORT INFORMATION
  Report Type: Spontaneous
  Country: GR (occurrence: GR)
  Receive Date: 20201223
  Receipt Date: 20210101
  Transmission Date: 20210419
  Serious: Yes (Hospitalization, Other)
  Sender: FDA-Public Use
  Company Number: GR-TAKEDA-2020TEU011879

PATIENT
  Age: 16 Year
  Sex: Female

DRUGS (2)
  1. COLCHICINE. [Suspect]
     Active Substance: COLCHICINE
     Indication: PSTPIP1-ASSOCIATED MYELOID-RELATED PROTEINAEMIA INFLAMMATORY SYNDROME
     Dosage: 0.5 MILLIGRAM, QD
     Route: 065
  2. COLCHICINE. [Suspect]
     Active Substance: COLCHICINE
     Dosage: 0.5 MILLIGRAM, QD
     Route: 065

REACTIONS (6)
  - Cough [Unknown]
  - Somnolence [Unknown]
  - Generalised tonic-clonic seizure [Unknown]
  - Haemophagocytic lymphohistiocytosis [Unknown]
  - Pyrexia [Unknown]
  - Off label use [Unknown]
